FAERS Safety Report 18725924 (Version 2)
Quarter: 2021Q1

REPORT INFORMATION
  Report Type: Report from Study
  Country: US (occurrence: US)
  Receive Date: 20210111
  Receipt Date: 20210119
  Transmission Date: 20210419
  Serious: Yes (Death)
  Sender: FDA-Public Use
  Company Number: US-OTSUKA-2021_000566

PATIENT
  Age: 93 Year
  Sex: Female

DRUGS (2)
  1. TOLVAPTAN [Suspect]
     Active Substance: TOLVAPTAN
     Indication: BLOOD OSMOLARITY DECREASED
     Dosage: 30 MG, UNK
     Route: 065
     Dates: start: 20190318
  2. TOLVAPTAN [Suspect]
     Active Substance: TOLVAPTAN
     Indication: HYPONATRAEMIA

REACTIONS (3)
  - Product use in unapproved indication [Unknown]
  - Incorrect product administration duration [Unknown]
  - Death [Fatal]

NARRATIVE: CASE EVENT DATE: 20190318
